FAERS Safety Report 16950655 (Version 1)
Quarter: 2019Q4

REPORT INFORMATION
  Report Type: Report from Study
  Country: CN (occurrence: CN)
  Receive Date: 20191023
  Receipt Date: 20191023
  Transmission Date: 20200122
  Serious: Yes (Other)
  Sender: FDA-Public Use
  Company Number: CN-ROCHE-2448410

PATIENT
  Age: 4 Year
  Sex: Male

DRUGS (15)
  1. ANTITHYMOCYTE IMMUNOGLOBULIN [Suspect]
     Active Substance: THYMOCYTE IMMUNE GLOBULIN NOS
     Indication: BONE MARROW CONDITIONING REGIMEN
     Dosage: 20-35 MG/
     Route: 065
  2. GRANULOCYTE COLONY STIMULATING FACTOR [Suspect]
     Active Substance: GRANULOCYTE COLONY-STIMULATING FACTOR NOS
     Indication: BONE MARROW CONDITIONING REGIMEN
     Dosage: 5 MCG/(KG/D)
     Route: 058
  3. MYCOPHENOLATE MOFETIL. [Suspect]
     Active Substance: MYCOPHENOLATE MOFETIL
     Indication: PROPHYLAXIS AGAINST GRAFT VERSUS HOST DISEASE
     Route: 065
  4. CYTARABINE. [Suspect]
     Active Substance: CYTARABINE
     Indication: BONE MARROW CONDITIONING REGIMEN
     Dosage: 6-25 G/M2
     Route: 065
  5. CYCLOPHOSPHAMIDE. [Suspect]
     Active Substance: CYCLOPHOSPHAMIDE
     Indication: BONE MARROW CONDITIONING REGIMEN
     Dosage: 80-120MG/KG
     Route: 065
  6. MITOXANTRONE [Suspect]
     Active Substance: MITOXANTRONE HYDROCHLORIDE
     Indication: BONE MARROW CONDITIONING REGIMEN
     Dosage: 30-50 MG/M2
     Route: 065
  7. BUSULFAN. [Suspect]
     Active Substance: BUSULFAN
     Indication: BONE MARROW CONDITIONING REGIMEN
     Dosage: 4.8-14.4MG/KG
     Route: 065
  8. SULFAMETHOXAZOLE [Suspect]
     Active Substance: SULFAMETHOXAZOLE
     Indication: ANTIFUNGAL PROPHYLAXIS
     Route: 048
  9. TENIPOSIDE. [Suspect]
     Active Substance: TENIPOSIDE
     Indication: BONE MARROW CONDITIONING REGIMEN
     Dosage: 300 MG/M2
     Route: 065
  10. ALPROSTADIL. [Suspect]
     Active Substance: ALPROSTADIL
     Indication: CARDIOVASCULAR EVENT PROPHYLAXIS
     Route: 065
  11. GANCICLOVIR SODIUM. [Suspect]
     Active Substance: GANCICLOVIR SODIUM
     Indication: INFECTION PROPHYLAXIS
     Route: 065
  12. FLUDARABINE PHOSPHATE. [Suspect]
     Active Substance: FLUDARABINE PHOSPHATE
     Indication: BONE MARROW CONDITIONING REGIMEN
     Dosage: 120-200 MG/M2
     Route: 065
  13. URSODEOXYCHOLIC ACID [Suspect]
     Active Substance: URSODIOL
     Indication: CARDIOVASCULAR EVENT PROPHYLAXIS
     Route: 048
  14. ACYCLOVIR [ACICLOVIR] [Suspect]
     Active Substance: ACYCLOVIR
     Indication: INFECTION PROPHYLAXIS
     Route: 065
  15. METHOTREXATE SODIUM. [Suspect]
     Active Substance: METHOTREXATE SODIUM
     Indication: PROPHYLAXIS AGAINST GRAFT VERSUS HOST DISEASE
     Route: 065

REACTIONS (5)
  - Intestinal obstruction [Recovered/Resolved]
  - Cytomegalovirus viraemia [Recovered/Resolved]
  - Gastrointestinal infection [Recovered/Resolved]
  - Epistaxis [Recovered/Resolved]
  - Cystitis haemorrhagic [Recovered/Resolved]
